FAERS Safety Report 22128191 (Version 1)
Quarter: 2023Q1

REPORT INFORMATION
  Report Type: Spontaneous
  Country: ES (occurrence: ES)
  Receive Date: 20230323
  Receipt Date: 20230323
  Transmission Date: 20230417
  Serious: Yes (Hospitalization)
  Sender: FDA-Public Use
  Company Number: None

PATIENT
  Age: 35 Year
  Sex: Male

DRUGS (3)
  1. CELLCEPT [Suspect]
     Active Substance: MYCOPHENOLATE MOFETIL
     Indication: Renal transplant
     Dosage: 1-0-1
     Route: 065
     Dates: start: 20190301, end: 20190812
  2. FEBUXOSTAT [Suspect]
     Active Substance: FEBUXOSTAT
     Indication: Hyperuricaemia
     Dosage: 80 MG DAILY
     Route: 065
     Dates: start: 20161001, end: 20190812
  3. CARBOCYSTEINE LYSINE [Suspect]
     Active Substance: CARBOCYSTEINE LYSINE
     Indication: Respiratory tract infection
     Dosage: 1-0-0
     Route: 065
     Dates: start: 20190809, end: 20190811

REACTIONS (1)
  - Tubulointerstitial nephritis [Not Recovered/Not Resolved]

NARRATIVE: CASE EVENT DATE: 20190811
